FAERS Safety Report 22264998 (Version 3)
Quarter: 2023Q2

REPORT INFORMATION
  Report Type: Spontaneous
  Country: US (occurrence: US)
  Receive Date: 20230428
  Receipt Date: 20230519
  Transmission Date: 20230722
  Serious: Yes (Other)
  Sender: FDA-Public Use
  Company Number: US-ORGANON-O2304USA002720

PATIENT
  Age: 3 Year
  Sex: Male

DRUGS (1)
  1. SINGULAIR [Suspect]
     Active Substance: MONTELUKAST SODIUM
     Indication: Hypersensitivity
     Dosage: UNK
     Route: 048

REACTIONS (12)
  - Suicide attempt [Not Recovered/Not Resolved]
  - Hallucinations, mixed [Not Recovered/Not Resolved]
  - Suicidal ideation [Not Recovered/Not Resolved]
  - Suicidal behaviour [Not Recovered/Not Resolved]
  - Dyslexia [Not Recovered/Not Resolved]
  - Sleep terror [Not Recovered/Not Resolved]
  - Dysphemia [Not Recovered/Not Resolved]
  - Nightmare [Not Recovered/Not Resolved]
  - Muscle twitching [Unknown]
  - Depression [Not Recovered/Not Resolved]
  - Aggression [Not Recovered/Not Resolved]
  - Middle insomnia [Unknown]
